FAERS Safety Report 15676117 (Version 1)
Quarter: 2018Q4

REPORT INFORMATION
  Report Type: Spontaneous
  Country: US (occurrence: US)
  Receive Date: 20181129
  Receipt Date: 20181129
  Transmission Date: 20190205
  Serious: Yes (Hospitalization)
  Sender: FDA-Public Use
  Company Number: None

PATIENT
  Age: 77 Year
  Sex: Female
  Weight: 80.29 kg

DRUGS (23)
  1. NORCO [Concomitant]
     Active Substance: ACETAMINOPHEN\HYDROCODONE BITARTRATE
  2. HYDRALAZINE [Concomitant]
     Active Substance: HYDRALAZINE HYDROCHLORIDE
  3. HYDROCHLOROTHIAZIDE. [Concomitant]
     Active Substance: HYDROCHLOROTHIAZIDE
  4. OMEPRAZOLE. [Concomitant]
     Active Substance: OMEPRAZOLE
  5. FERROUS SULFATE. [Concomitant]
     Active Substance: FERROUS SULFATE
  6. METOPROLOL TARTRATE. [Concomitant]
     Active Substance: METOPROLOL TARTRATE
  7. VITAMIN B12 [Concomitant]
     Active Substance: CYANOCOBALAMIN
  8. LOSARTAN. [Concomitant]
     Active Substance: LOSARTAN
  9. POTASSIUM CITRATE ER [Concomitant]
     Active Substance: POTASSIUM CITRATE
  10. PRAVASTATIN. [Concomitant]
     Active Substance: PRAVASTATIN
  11. IBRANCE [Concomitant]
     Active Substance: PALBOCICLIB
  12. CAPECITABINE. [Suspect]
     Active Substance: CAPECITABINE
     Indication: BREAST CANCER FEMALE
     Route: 048
     Dates: start: 20181122, end: 20181127
  13. PROCHLORPERAZINE. [Concomitant]
     Active Substance: PROCHLORPERAZINE
  14. WARFARIN [Concomitant]
     Active Substance: WARFARIN
  15. VITAMIN B6 [Concomitant]
     Active Substance: PYRIDOXINE HYDROCHLORIDE
  16. LETROZOLE. [Concomitant]
     Active Substance: LETROZOLE
  17. VITAMIN C [Concomitant]
     Active Substance: ASCORBIC ACID
  18. CAPECITABINE. [Suspect]
     Active Substance: CAPECITABINE
     Indication: BREAST CANCER FEMALE
     Route: 048
     Dates: start: 20181122, end: 20181127
  19. FASLODEX [Concomitant]
     Active Substance: FULVESTRANT
  20. XGEVA [Concomitant]
     Active Substance: DENOSUMAB
  21. CALCIUM [Concomitant]
     Active Substance: CALCIUM
  22. MAG OX [Concomitant]
     Active Substance: MAGNESIUM OXIDE
  23. VITAMIN D3 [Concomitant]
     Active Substance: CHOLECALCIFEROL

REACTIONS (2)
  - Asthenia [None]
  - Dizziness [None]

NARRATIVE: CASE EVENT DATE: 20181126
